FAERS Safety Report 6293275-8 (Version None)
Quarter: 2009Q3

REPORT INFORMATION
  Report Type: 
  Country: None (occurrence: None)
  Receive Date: 20090731
  Receipt Date: 20090722
  Transmission Date: 20100115
  Serious: Yes (Hospitalization, Other)
  Sender: FDA-Public Use
  Company Number: US-JNJFOC-20090707357

PATIENT
  Sex: Female
  Weight: 57.61 kg

DRUGS (12)
  1. REMICADE [Suspect]
     Indication: CROHN'S DISEASE
     Route: 042
  2. REMICADE [Suspect]
     Indication: OSTEOARTHRITIS
     Route: 042
  3. REMICADE [Suspect]
     Indication: RHEUMATOID ARTHRITIS
     Route: 042
  4. ASACOL [Concomitant]
     Indication: ARTHRITIS
     Dosage: FOR 8 YEARS
  5. COLACE [Concomitant]
     Indication: ARTHRITIS
     Dosage: FOR 8 YEARS
  6. FOLIC ACID [Concomitant]
     Indication: ARTHRITIS
     Dosage: FOR 8 YEARS
  7. FLEXERIL [Concomitant]
     Indication: ARTHRITIS
     Dosage: FOR 8 YEARS
  8. LIBRAX [Concomitant]
     Indication: ARTHRITIS
  9. PRILOSEC [Concomitant]
     Indication: GASTROOESOPHAGEAL REFLUX DISEASE
  10. FOSAMAX [Concomitant]
     Indication: ARTHRITIS
  11. METHOTREXATE [Concomitant]
     Indication: ARTHRITIS
  12. VICODIN [Concomitant]
     Indication: PAIN

REACTIONS (14)
  - ANKLE FRACTURE [None]
  - APPENDICECTOMY [None]
  - BASAL CELL CARCINOMA [None]
  - CHOLECYSTECTOMY [None]
  - DRUG INEFFECTIVE [None]
  - FALL [None]
  - HOSPITALISATION [None]
  - INFECTION [None]
  - MEDICAL DEVICE COMPLICATION [None]
  - PNEUMONIA [None]
  - SURGERY [None]
  - UPPER LIMB FRACTURE [None]
  - VIRAL INFECTION [None]
  - WRIST FRACTURE [None]
